FAERS Safety Report 15101360 (Version 3)
Quarter: 2020Q1

REPORT INFORMATION
  Report Type: Report from Study
  Country: DE (occurrence: DE)
  Receive Date: 20180703
  Receipt Date: 20200324
  Transmission Date: 20200409
  Serious: Yes (Disabling, Congenital Anomaly, Other)
  Sender: FDA-Public Use
  Company Number: DE-AUROBINDO-AUR-APL-2018-033614

PATIENT
  Age: 1 Day
  Sex: Female
  Weight: 1.95 kg

DRUGS (10)
  1. OMEPRAZOLE. [Suspect]
     Active Substance: OMEPRAZOLE
     Indication: PRODUCT USED FOR UNKNOWN INDICATION
     Dosage: UNK, UNKNOWN FREQ. (0-8 GW)40 [MG/D ]/
     Route: 064
  2. TORASEMIDE [Suspect]
     Active Substance: TORSEMIDE
     Indication: PRODUCT USED FOR UNKNOWN INDICATION
     Dosage: UNK, UNKNOWN FREQ. (0-5 GW)
     Route: 064
  3. IDEOS [Suspect]
     Active Substance: CALCIUM CARBONATE\CHOLECALCIFEROL
     Indication: PRODUCT USED FOR UNKNOWN INDICATION
     Dosage: 10 MICROGRAM, ONCE A DAY (DAILY DOSE: 20 ?G MICROGRAM(S) EVERY DAY)
     Route: 064
  4. FOLSAEURE [Suspect]
     Active Substance: FOLIC ACID
     Indication: PRODUCT USED FOR UNKNOWN INDICATION
     Dosage: 5 MILLIGRAM, ONCE A DAY
     Route: 064
  5. RAMIPRIL. [Suspect]
     Active Substance: RAMIPRIL
     Indication: PRODUCT USED FOR UNKNOWN INDICATION
     Dosage: 2.5 MILLIGRAM, UNKNOWN FREQ. (0-8 GW)
     Route: 064
  6. FUROSEMIDE. [Suspect]
     Active Substance: FUROSEMIDE
     Indication: PRODUCT USED FOR UNKNOWN INDICATION
     Dosage: UNK, UNKNOWN FREQ. (5+4-19+5 GW)80 [MG/D ]/ -? BEI BEDARF, 40  BIS 80 MG/D
     Route: 064
  7. FLUVASTATIN [Suspect]
     Active Substance: FLUVASTATIN SODIUM
     Indication: PRODUCT USED FOR UNKNOWN INDICATION
     Dosage: UNK, UNKNOWN FREQ. (0-8 GW) ()
     Route: 064
  8. RAMIPRIL. [Suspect]
     Active Substance: RAMIPRIL
     Dosage: 3 MILLIGRAM
     Route: 048
  9. PREDNISOLONE. [Suspect]
     Active Substance: PREDNISOLONE
     Indication: PRODUCT USED FOR UNKNOWN INDICATION
     Dosage: 5-100 MG, UNKNOWN FREQ. (0?35+1 GW)5MG UNTIL WEEK 5+1
     Route: 064
  10. TACROLIMUS. [Suspect]
     Active Substance: TACROLIMUS
     Indication: PRODUCT USED FOR UNKNOWN INDICATION
     Dosage: 2 MILLIGRAM, ONCE A DAY, UNK UNK, UNKNOWN FREQ. (0-19+6- GW)DAILY DOSE
     Route: 064

REACTIONS (14)
  - Atrial septal defect [Unknown]
  - Foetal exposure during pregnancy [Unknown]
  - Neck deformity [Unknown]
  - Retrognathia [Unknown]
  - Talipes [Unknown]
  - Dysmorphism [Unknown]
  - Congenital oral malformation [Unknown]
  - Developmental hip dysplasia [Unknown]
  - Limb reduction defect [Not Recovered/Not Resolved]
  - Cleft palate [Unknown]
  - Premature baby [Recovering/Resolving]
  - Aplasia [Unknown]
  - Limb hypoplasia congenital [Unknown]
  - Patent ductus arteriosus [Unknown]

NARRATIVE: CASE EVENT DATE: 20080920
